FAERS Safety Report 6155771-3 (Version None)
Quarter: 2009Q2

REPORT INFORMATION
  Report Type: 
  Country: None (occurrence: None)
  Receive Date: 20090413
  Receipt Date: 20090327
  Transmission Date: 20091009
  Serious: Yes (Death)
  Sender: FDA-Public Use
  Company Number: OPER20090077

PATIENT
  Age: 52 Year
  Sex: Male
  Weight: 137.4399 kg

DRUGS (7)
  1. OPANA ER [Suspect]
     Indication: RHEUMATOID ARTHRITIS
     Dosage: 30 MG, Q12H, PER ORAL
     Route: 048
     Dates: start: 20090202, end: 20090201
  2. FLUOXETINE [Suspect]
     Indication: DEPRESSION
     Dosage: 40 MG, 1 DAILY, PER ORAL
     Route: 048
     Dates: start: 20071008, end: 20090201
  3. LISINOPRIL AND HYDROCHLOROTHIAZIDE [Suspect]
     Indication: HYPERTENSION
     Dosage: 1 TAB DAILY, PER ORAL
     Route: 048
     Dates: start: 20080404, end: 20090201
  4. NABUMETONE [Suspect]
     Indication: ARTHRITIS
     Dosage: 750 MG, 1 TAB BID, PER ORAL
     Route: 048
     Dates: start: 20070619, end: 20090201
  5. LORATADINE [Suspect]
     Indication: RHINITIS ALLERGIC
     Dosage: 10 MG, 1 TAB DAILY, PER ORAL
     Route: 048
     Dates: start: 20081031, end: 20090201
  6. ANDRODERM [Suspect]
     Indication: HYPOGONADISM
     Dosage: 5 MG, 1 PATCH DAILY, TRANSDERMAL
     Route: 062
     Dates: start: 20080609, end: 20090201
  7. FOLIC ACID [Suspect]
     Dosage: 1 MG, 1 DAILY, PER ORAL
     Route: 048
     Dates: start: 20070417, end: 20090201

REACTIONS (1)
  - PAIN [None]
